FAERS Safety Report 20617435 (Version 1)
Quarter: 2022Q1

REPORT INFORMATION
  Report Type: Spontaneous
  Country: US (occurrence: None)
  Receive Date: 20220319
  Receipt Date: 20220319
  Transmission Date: 20220423
  Serious: Yes (Disabling)
  Sender: FDA-Public Use
  Company Number: None

PATIENT
  Age: 60 Year
  Sex: Female
  Weight: 60.75 kg

DRUGS (11)
  1. NADOLOL [Suspect]
     Active Substance: NADOLOL
     Indication: Hypertension
     Dosage: OTHER QUANTITY : 1 TABLET(S);?FREQUENCY : DAILY;?
     Route: 048
     Dates: start: 20210601
  2. Furosemide 40 mg tablet (once daily [Concomitant]
  3. Spironolactone 100 mg tablet (once daily [Concomitant]
  4. Lactulose 10 gram/15 mL solution (30 mL twice daily [Concomitant]
  5. VITAMINS [Concomitant]
     Active Substance: VITAMINS
  6. HERBALS\TURMERIC [Concomitant]
     Active Substance: HERBALS\TURMERIC
  7. FOLIC ACID [Concomitant]
     Active Substance: FOLIC ACID
  8. Thiamine 50 mg tablet [Concomitant]
  9. ZINC [Concomitant]
     Active Substance: ZINC
  10. VITAMIN D3 [Concomitant]
     Active Substance: CHOLECALCIFEROL
  11. GLUTATHIONE [Concomitant]
     Active Substance: GLUTATHIONE

REACTIONS (9)
  - Vision blurred [None]
  - Dry mouth [None]
  - Dry eye [None]
  - Clumsiness [None]
  - Fatigue [None]
  - Pain in extremity [None]
  - Pain in extremity [None]
  - Sensory loss [None]
  - Headache [None]

NARRATIVE: CASE EVENT DATE: 20210723
